FAERS Safety Report 4999429-2 (Version None)
Quarter: 2006Q2

REPORT INFORMATION
  Report Type: 
  Country: None (occurrence: None)
  Receive Date: 20060511
  Receipt Date: 20051109
  Transmission Date: 20061013
  Serious: Yes (Death, Hospitalization)
  Sender: FDA-Public Use
  Company Number: PHHO2005DK17861

PATIENT
  Age: 55 Year
  Sex: Female
  Weight: 51 kg

DRUGS (6)
  1. IMUREL [Concomitant]
     Indication: LUNG TRANSPLANT
     Dosage: 75 MG, QD
     Route: 048
     Dates: start: 20050303
  2. PREDNISOLONE [Concomitant]
     Dosage: UNK, UNK
  3. PREDNISOLONE [Concomitant]
     Dosage: 50 MG, QD
  4. PREDNISOLONE [Concomitant]
     Dosage: 40 MG, QD
     Route: 048
  5. SANDIMMUNE [Suspect]
     Indication: LUNG TRANSPLANT
     Dosage: 150 MG/DAY
     Route: 048
     Dates: start: 20050303
  6. SANDIMMUNE [Suspect]
     Dosage: 225 MG/DAY
     Route: 048
     Dates: end: 20051228

REACTIONS (5)
  - COMPLICATIONS OF TRANSPLANTED LUNG [None]
  - DYSPNOEA [None]
  - INTERSTITIAL LUNG DISEASE [None]
  - PNEUMONIA [None]
  - PULMONARY FUNCTION TEST DECREASED [None]
